FAERS Safety Report 25602373 (Version 1)
Quarter: 2025Q3

REPORT INFORMATION
  Report Type: Spontaneous
  Country: US (occurrence: US)
  Receive Date: 20250724
  Receipt Date: 20250724
  Transmission Date: 20251021
  Serious: No
  Sender: DR REDDYS
  Company Number: US-DRL-USA-USA/2025/07/010693

PATIENT
  Sex: Male

DRUGS (2)
  1. NALOXONE [Suspect]
     Active Substance: NALOXONE
     Indication: Toxicity to various agents
     Route: 042
  2. NALOXONE [Concomitant]
     Active Substance: NALOXONE
     Indication: Toxicity to various agents
     Route: 045

REACTIONS (1)
  - Drug ineffective [Unknown]
